FAERS Safety Report 17658190 (Version 3)
Quarter: 2020Q2

REPORT INFORMATION
  Report Type: Spontaneous
  Country: US (occurrence: US)
  Receive Date: 20200412
  Receipt Date: 20200507
  Transmission Date: 20200713
  Serious: No
  Sender: FDA-Public Use
  Company Number: US-ASTRAZENECA-2020SE45239

PATIENT
  Sex: Female
  Weight: 76.7 kg

DRUGS (1)
  1. BYDUREON BCISE [Suspect]
     Active Substance: EXENATIDE
     Indication: TYPE 2 DIABETES MELLITUS
     Route: 058
     Dates: start: 20200312

REACTIONS (11)
  - Injection site discolouration [Not Recovered/Not Resolved]
  - Weight increased [Unknown]
  - Injection site nodule [Not Recovered/Not Resolved]
  - Device issue [Unknown]
  - Injection site mass [Unknown]
  - Injection site pruritus [Not Recovered/Not Resolved]
  - Injection site pain [Unknown]
  - Injection site haemorrhage [Unknown]
  - Investigation abnormal [Unknown]
  - Injection site bruising [Not Recovered/Not Resolved]
  - Intentional device misuse [Unknown]
